FAERS Safety Report 22248552 (Version 1)
Quarter: 2023Q2

REPORT INFORMATION
  Report Type: Spontaneous
  Country: ES (occurrence: ES)
  Receive Date: 20230425
  Receipt Date: 20230425
  Transmission Date: 20230722
  Serious: Yes (Hospitalization, Other)
  Sender: FDA-Public Use
  Company Number: ES-AEMPS-1234775

PATIENT
  Age: 58 Year
  Sex: Female

DRUGS (7)
  1. CIPROFLOXACIN [Suspect]
     Active Substance: CIPROFLOXACIN
     Indication: Intestinal obstruction
     Dosage: UNK
     Route: 042
     Dates: start: 20220607, end: 20220616
  2. MEROPENEM [Suspect]
     Active Substance: MEROPENEM
     Indication: Intestinal obstruction
     Dosage: UNK
     Route: 042
     Dates: start: 20220603, end: 20220622
  3. METRONIDAZOLE [Suspect]
     Active Substance: METRONIDAZOLE
     Indication: Intestinal obstruction
     Dosage: UNK
     Route: 042
     Dates: start: 20220607, end: 20220616
  4. LINEZOLID [Suspect]
     Active Substance: LINEZOLID
     Indication: Intestinal obstruction
     Dosage: UNK
     Route: 042
     Dates: start: 20220608, end: 20220615
  5. AMOXICILLIN\CLAVULANIC ACID [Suspect]
     Active Substance: AMOXICILLIN\CLAVULANIC ACID
     Indication: Abdominal infection
     Dosage: 1 DOSAGE FORM, 3 TIMES A DAY
     Route: 042
     Dates: start: 20220529, end: 20220603
  6. AMOXICILLIN\CLAVULANIC ACID [Suspect]
     Active Substance: AMOXICILLIN\CLAVULANIC ACID
     Dosage: 1 DOSAGE FORM, 3 TIMES A DAY
     Route: 042
     Dates: start: 20220627, end: 20220628
  7. METAMIZOL [Suspect]
     Active Substance: METAMIZOLE SODIUM
     Indication: Pain
     Dosage: 2 GRAM, 3 TIMES A DAY
     Route: 042
     Dates: start: 20220529, end: 20220628

REACTIONS (2)
  - Hepatic cytolysis [Recovered/Resolved]
  - Drug reaction with eosinophilia and systemic symptoms [Recovered/Resolved]

NARRATIVE: CASE EVENT DATE: 20220628
